FAERS Safety Report 24228163 (Version 1)
Quarter: 2024Q3

REPORT INFORMATION
  Report Type: Spontaneous
  Country: ES (occurrence: ES)
  Receive Date: 20240820
  Receipt Date: 20240820
  Transmission Date: 20241017
  Serious: Yes (Life-Threatening, Hospitalization)
  Sender: RANBAXY
  Company Number: ES-AEMPS-1434409

PATIENT
  Age: 38 Year
  Sex: Female

DRUGS (2)
  1. LEVETIRACETAM [Suspect]
     Active Substance: LEVETIRACETAM
     Indication: Temporal lobe epilepsy
     Dosage: UNK
     Route: 048
     Dates: start: 20191221
  2. ESLICARBAZEPINE [Suspect]
     Active Substance: ESLICARBAZEPINE
     Indication: Temporal lobe epilepsy
     Dosage: UNK
     Route: 048
     Dates: start: 20200320, end: 202004

REACTIONS (5)
  - Hepatic cytolysis [Recovered/Resolved]
  - Lymphadenopathy [Recovered/Resolved]
  - Lymphadenopathy [Recovered/Resolved]
  - Axillary lymphadenectomy [Recovered/Resolved]
  - Drug reaction with eosinophilia and systemic symptoms [Recovered/Resolved]

NARRATIVE: CASE EVENT DATE: 20200422
